FAERS Safety Report 4821783-2 (Version None)
Quarter: 2005Q4

REPORT INFORMATION
  Report Type: 
  Country: None (occurrence: None)
  Receive Date: 20051107
  Receipt Date: 20051027
  Transmission Date: 20060501
  Serious: Yes (Hospitalization)
  Sender: FDA-Public Use
  Company Number: US-AMGEN-US155825

PATIENT
  Sex: Female

DRUGS (12)
  1. NEULASTA [Suspect]
     Indication: CHEMOTHERAPY
     Dates: start: 20051019
  2. CYTOXAN [Concomitant]
  3. ADRIAMYCIN PFS [Concomitant]
  4. FLUOROURACIL [Concomitant]
  5. NORVASC [Concomitant]
  6. METFORMIN HCL [Concomitant]
  7. LESCOL [Concomitant]
  8. DETROL [Concomitant]
  9. ARIMIDEX [Concomitant]
  10. MICARDIS [Concomitant]
  11. OXYCONTIN [Concomitant]
  12. ELAVIL [Concomitant]

REACTIONS (1)
  - WHITE BLOOD CELL COUNT DECREASED [None]
